FAERS Safety Report 7659736-1 (Version None)
Quarter: 2011Q3

REPORT INFORMATION
  Report Type: 
  Country: None (occurrence: None)
  Receive Date: 20110805
  Receipt Date: 20100830
  Transmission Date: 20111222
  Serious: No
  Sender: FDA-Public Use
  Company Number: US-ABBOTT-10P-163-0668670-00

PATIENT
  Sex: Female
  Weight: 44.492 kg

DRUGS (5)
  1. DEPAKOTE ER [Suspect]
     Indication: PRODUCT USED FOR UNKNOWN INDICATION
     Route: 048
  2. MOTRIN [Concomitant]
     Indication: LIGAMENT RUPTURE
  3. VITAMIN TAB [Concomitant]
     Indication: PRODUCT USED FOR UNKNOWN INDICATION
  4. MOTRIN [Concomitant]
  5. MOTRIN [Concomitant]
     Indication: JOINT SWELLING
     Route: 048

REACTIONS (11)
  - PYREXIA [None]
  - WRONG DRUG ADMINISTERED [None]
  - DIZZINESS [None]
  - DYSGEUSIA [None]
  - WRONG TECHNIQUE IN DRUG USAGE PROCESS [None]
  - NAUSEA [None]
  - NON-CARDIAC CHEST PAIN [None]
  - SLEEP DISORDER [None]
  - SOMNOLENCE [None]
  - ABDOMINAL PAIN UPPER [None]
  - TOXICITY TO VARIOUS AGENTS [None]
